FAERS Safety Report 16836799 (Version 2)
Quarter: 2019Q3

REPORT INFORMATION
  Report Type: Report from Study
  Country: ES (occurrence: ES)
  Receive Date: 20190922
  Receipt Date: 20190922
  Transmission Date: 20191005
  Serious: Yes (Death, Life-Threatening, Hospitalization)
  Sender: FDA-Public Use
  Company Number: ES-CELGENEUS-ESP-2014113067

PATIENT
  Age: 69 Year
  Sex: Male
  Weight: 84 kg

DRUGS (36)
  1. REVLIMID [Suspect]
     Active Substance: LENALIDOMIDE
     Dosage: 25 MILLIGRAM
     Route: 048
     Dates: start: 20121010, end: 20131218
  2. REVLIMID [Suspect]
     Active Substance: LENALIDOMIDE
     Route: 048
     Dates: start: 20111118, end: 20120226
  3. REVLIMID [Suspect]
     Active Substance: LENALIDOMIDE
     Route: 048
     Dates: start: 20120227, end: 20120424
  4. ALLOPURINOL. [Concomitant]
     Active Substance: ALLOPURINOL
     Dosage: DOSE INCREASED
     Route: 048
     Dates: start: 20141118, end: 20141119
  5. FUROSEMIDE. [Concomitant]
     Active Substance: FUROSEMIDE
     Indication: PROPHYLAXIS
     Dosage: 60 MILLIGRAM/MILLILITERS
     Route: 041
     Dates: start: 20141118, end: 20141119
  6. FENTANYL. [Concomitant]
     Active Substance: FENTANYL
     Indication: BONE PAIN
     Dosage: 25 MICROGRAM
     Route: 062
     Dates: start: 20140502, end: 20141120
  7. LOSARTAN. [Concomitant]
     Active Substance: LOSARTAN
     Indication: HYPERTENSION
     Dosage: 50 MILLIGRAM
     Route: 048
     Dates: start: 20141118, end: 20141128
  8. PUNTUAL [Concomitant]
     Indication: CONSTIPATION PROPHYLAXIS
     Route: 048
     Dates: start: 20141124, end: 20141125
  9. PUNTUAL [Concomitant]
     Dosage: 12 DROPS
     Route: 048
     Dates: start: 20141126, end: 20141128
  10. REVLIMID [Suspect]
     Active Substance: LENALIDOMIDE
     Dosage: 25 MILLIGRAM
     Route: 048
     Dates: start: 20140212, end: 20140324
  11. OMEPRAZOLE. [Concomitant]
     Active Substance: OMEPRAZOLE
     Indication: PROPHYLAXIS
     Dosage: 20 MILLIGRAM
     Route: 048
     Dates: start: 20070302, end: 20141117
  12. ALLOPURINOL. [Concomitant]
     Active Substance: ALLOPURINOL
     Dosage: DOSE REDUCED
     Route: 048
     Dates: start: 20141120, end: 20141127
  13. PLANTAGO OVATA [Concomitant]
     Active Substance: HERBALS\PLANTAGO OVATA LEAF
     Indication: CONSTIPATION PROPHYLAXIS
     Dosage: 10.5 GRAM
     Route: 048
     Dates: start: 20141118, end: 20141120
  14. REVLIMID [Suspect]
     Active Substance: LENALIDOMIDE
     Dosage: 15 MILLIGRAM
     Route: 048
     Dates: start: 20120912, end: 20121009
  15. CC-4047 (PRE-TREATMENT) [Suspect]
     Active Substance: POMALIDOMIDE
     Indication: PLASMA CELL MYELOMA
     Route: 048
  16. PARACETAMOL [Concomitant]
     Active Substance: ACETAMINOPHEN
     Indication: PYREXIA
     Route: 041
     Dates: start: 20141126, end: 20141129
  17. FUROSEMIDE. [Concomitant]
     Active Substance: FUROSEMIDE
     Indication: OEDEMA
     Route: 048
     Dates: start: 20130625, end: 20141117
  18. PLANTAGO OVATA [Concomitant]
     Active Substance: HERBALS\PLANTAGO OVATA LEAF
     Route: 048
     Dates: start: 20110313, end: 20141117
  19. DEXAMETHASONE. [Suspect]
     Active Substance: DEXAMETHASONE
     Dosage: 40MG/5ML
     Route: 041
     Dates: start: 20141126, end: 20141128
  20. LORAZEPAM. [Concomitant]
     Active Substance: LORAZEPAM
     Indication: ANXIETY
     Dosage: 2 MILLIGRAM
     Route: 048
     Dates: start: 20130425, end: 20141127
  21. SULFAMETHOXAZOLE W/TRIMETHOPRIM [Concomitant]
     Active Substance: SULFAMETHOXAZOLE\TRIMETHOPRIM
     Indication: INFECTION PROPHYLAXIS
     Dosage: 800/160 MG
     Route: 048
     Dates: start: 20140401, end: 20141128
  22. PARACETAMOL [Concomitant]
     Active Substance: ACETAMINOPHEN
     Indication: BONE PAIN
     Dosage: 3 GRAM
     Route: 048
     Dates: start: 20141111, end: 20141117
  23. FENTANYL. [Concomitant]
     Active Substance: FENTANYL
     Dosage: DOSE INCREASED
     Route: 062
     Dates: start: 20141126, end: 20141128
  24. DEXAMETHASONE. [Suspect]
     Active Substance: DEXAMETHASONE
     Indication: PLASMA CELL MYELOMA
     Dosage: 40MG/5ML
     Route: 041
     Dates: start: 20141119, end: 20141122
  25. ALLOPURINOL. [Concomitant]
     Active Substance: ALLOPURINOL
     Indication: PROPHYLAXIS
     Dosage: 150 MILLIGRAM
     Route: 048
     Dates: start: 20111118, end: 20141117
  26. LYRICA [Concomitant]
     Active Substance: PREGABALIN
     Indication: NEURALGIA
     Dosage: 150 MILLIGRAM
     Route: 048
     Dates: start: 20111007, end: 20141128
  27. FUROSEMIDE. [Concomitant]
     Active Substance: FUROSEMIDE
     Dosage: 120 MILLIGRAM/MILLILITERS
     Route: 041
     Dates: start: 20141120, end: 20141123
  28. SEVREDOL [Concomitant]
     Active Substance: MORPHINE
     Indication: BONE PAIN
     Dosage: 80 MILLIGRAM
     Route: 048
     Dates: start: 20140502, end: 20141123
  29. AMLODIPINE [Concomitant]
     Active Substance: AMLODIPINE BESYLATE
     Indication: HYPERTENSION
     Dosage: 5 MILLIGRAM
     Route: 048
     Dates: start: 20141118, end: 20141128
  30. REVLIMID [Suspect]
     Active Substance: LENALIDOMIDE
     Dosage: 25 MILLIGRAM
     Route: 048
     Dates: start: 20120425, end: 20120911
  31. FUROSEMIDE. [Concomitant]
     Active Substance: FUROSEMIDE
     Dosage: 60 MILLIGRAM/MILLILITERS
     Route: 041
     Dates: start: 20141124, end: 20141128
  32. SEVREDOL [Concomitant]
     Active Substance: MORPHINE
     Dosage: 120 MILLIGRAM
     Route: 048
     Dates: start: 20141124, end: 20141128
  33. FENTANYL. [Concomitant]
     Active Substance: FENTANYL
     Dosage: DOSE REDUCED
     Route: 062
     Dates: start: 20141121, end: 20141124
  34. CAPENON [Concomitant]
     Active Substance: AMLODIPINE BESYLATE\OLMESARTAN MEDOXOMIL
     Indication: HYPERTENSION
     Route: 048
     Dates: start: 200908, end: 20141117
  35. REVLIMID [Suspect]
     Active Substance: LENALIDOMIDE
     Indication: PLASMA CELL MYELOMA
     Route: 048
     Dates: start: 20111007, end: 20111117
  36. REVLIMID [Suspect]
     Active Substance: LENALIDOMIDE
     Dosage: 10 MILLIGRAM
     Route: 048
     Dates: start: 20131219, end: 20140211

REACTIONS (2)
  - Acute respiratory failure [Fatal]
  - Renal cancer metastatic [Not Recovered/Not Resolved]

NARRATIVE: CASE EVENT DATE: 20141117
